FAERS Safety Report 18782588 (Version 1)
Quarter: 2021Q1

REPORT INFORMATION
  Report Type: Spontaneous
  Country: US (occurrence: US)
  Receive Date: 20210125
  Receipt Date: 20210125
  Transmission Date: 20210419
  Serious: No
  Sender: FDA-Public Use
  Company Number: US-ALLERGAN-2028092US

PATIENT
  Sex: Male

DRUGS (8)
  1. CARBIDOPA/LEVODOPA [Concomitant]
     Active Substance: CARBIDOPA\LEVODOPA
     Dosage: 2 DF, QID
     Dates: start: 20200720
  2. CARBIDOPA/LEVODOPA [Concomitant]
     Active Substance: CARBIDOPA\LEVODOPA
     Indication: PARKINSON^S DISEASE
     Dosage: 2 DF, QID
     Route: 048
  3. CARBIDOPA/LEVODOPA [Concomitant]
     Active Substance: CARBIDOPA\LEVODOPA
     Dosage: 25 MG 2 TABS 5 TIMES A DAY
     Dates: start: 20200611, end: 20200619
  4. REFRESH OPTIVE GEL DROPS [Suspect]
     Active Substance: CARBOXYMETHYLCELLULOSE SODIUM\GLYCERIN
     Indication: DRY EYE
     Dosage: UNK
     Route: 047
     Dates: start: 20200627, end: 20200726
  5. CLONAZEPAM. [Concomitant]
     Active Substance: CLONAZEPAM
     Indication: PARKINSON^S DISEASE
     Dosage: 1 MG, QHS
     Route: 048
  6. RESTASIS [Suspect]
     Active Substance: CYCLOSPORINE
     Indication: DRY EYE
     Dosage: 4 GTT, BID
     Route: 047
     Dates: start: 20200627, end: 20200727
  7. RESTASIS [Suspect]
     Active Substance: CYCLOSPORINE
     Dosage: 2 GTT, BID
     Route: 047
     Dates: start: 20200729
  8. SYSTANE (HYPROMELLOSE 2910 (4000 MPA.S)) [Concomitant]
     Active Substance: HYPROMELLOSE 2910 (4000 MPA.S)
     Indication: DRY EYE
     Dosage: UNK UNK, QD
     Route: 047
     Dates: start: 20200626, end: 20200803

REACTIONS (7)
  - Hallucination, visual [Not Recovered/Not Resolved]
  - Paranoia [Not Recovered/Not Resolved]
  - Illusion [Not Recovered/Not Resolved]
  - Delusion [Not Recovered/Not Resolved]
  - Fear [Not Recovered/Not Resolved]
  - Housebound [Not Recovered/Not Resolved]
  - Balance disorder [Not Recovered/Not Resolved]
